FAERS Safety Report 19136246 (Version 2)
Quarter: 2021Q3

REPORT INFORMATION
  Report Type: Spontaneous
  Country: US (occurrence: US)
  Receive Date: 20210414
  Receipt Date: 20210908
  Transmission Date: 20211014
  Serious: Yes (Hospitalization, Other)
  Sender: FDA-Public Use
  Company Number: US-GILEAD-2021-0524823

PATIENT
  Age: 64 Year
  Sex: Male
  Weight: 108.84 kg

DRUGS (46)
  1. GUAIFENESIN. [Concomitant]
     Active Substance: GUAIFENESIN
  2. IBUPROFEN. [Concomitant]
     Active Substance: IBUPROFEN
  3. INDOMETHACIN [INDOMETACIN] [Concomitant]
     Active Substance: INDOMETHACIN
  4. PREDNISONE. [Concomitant]
     Active Substance: PREDNISONE
  5. VIAGRA [Concomitant]
     Active Substance: SILDENAFIL CITRATE
  6. XENICAL [Concomitant]
     Active Substance: ORLISTAT
  7. NORVIR [Concomitant]
     Active Substance: RITONAVIR
  8. AZITHROMYCIN ANHYDROUS. [Concomitant]
     Active Substance: AZITHROMYCIN ANHYDROUS
  9. COLCRYS [Concomitant]
     Active Substance: COLCHICINE
  10. CRESTOR [Concomitant]
     Active Substance: ROSUVASTATIN CALCIUM
  11. SUPREP BOWEL PREP [Concomitant]
     Active Substance: MAGNESIUM SULFATE\POTASSIUM SULFATE\SODIUM SULFATE
  12. REPAGLINIDE. [Concomitant]
     Active Substance: REPAGLINIDE
  13. PREZISTA [Concomitant]
     Active Substance: DARUNAVIR ETHANOLATE
  14. CEPHALEXIN [CEFALEXIN] [Concomitant]
     Active Substance: CEPHALEXIN
  15. DESOXIMETASONE. [Concomitant]
     Active Substance: DESOXIMETASONE
  16. DOXYCYCLINE. [Concomitant]
     Active Substance: DOXYCYCLINE
  17. MINOCYCLINE [Concomitant]
     Active Substance: MINOCYCLINE HYDROCHLORIDE
  18. SILDENAFIL. [Concomitant]
     Active Substance: SILDENAFIL
  19. LISINOPRIL. [Concomitant]
     Active Substance: LISINOPRIL
  20. ACETAMINOPHEN. [Concomitant]
     Active Substance: ACETAMINOPHEN
  21. FLUVIRIN [INFLUENZA VACCINE INACT SAG 3V] [Concomitant]
  22. SULFAMETHOXAZOLE AND TRIMETHOPRIM [Concomitant]
     Active Substance: SULFAMETHOXAZOLE\TRIMETHOPRIM
  23. TRIUMEQ [Concomitant]
     Active Substance: ABACAVIR SULFATE\DOLUTEGRAVIR SODIUM\LAMIVUDINE
  24. ALLOPURINOL. [Concomitant]
     Active Substance: ALLOPURINOL
  25. ATORVASTATIN [Concomitant]
     Active Substance: ATORVASTATIN
  26. CIALIS [Concomitant]
     Active Substance: TADALAFIL
  27. CLINDAMYCIN. [Concomitant]
     Active Substance: CLINDAMYCIN
  28. CLOBETASOL [Concomitant]
     Active Substance: CLOBETASOL
  29. KETOCONAZOLE. [Concomitant]
     Active Substance: KETOCONAZOLE
  30. LEVOCETIRIZINE [Concomitant]
     Active Substance: LEVOCETIRIZINE
  31. TESTIM [Concomitant]
     Active Substance: TESTOSTERONE
  32. TRAMADOL. [Concomitant]
     Active Substance: TRAMADOL
  33. VITAMIN D2 [Concomitant]
     Active Substance: ERGOCALCIFEROL
  34. ATRIPLA [Suspect]
     Active Substance: EFAVIRENZ\EMTRICITABINE\TENOFOVIR DISOPROXIL FUMARATE
     Indication: HIV INFECTION
     Dosage: UNK
     Route: 048
     Dates: start: 2008, end: 2010
  35. PREZCOBIX [Concomitant]
     Active Substance: COBICISTAT\DARUNAVIR ETHANOLATE
  36. SYMTUZA [Concomitant]
     Active Substance: COBICISTAT\DARUNAVIR\EMTRICITABINE\TENOFOVIR ALAFENAMIDE
  37. ANDROGEL [Concomitant]
     Active Substance: TESTOSTERONE
  38. LYRICA [Concomitant]
     Active Substance: PREGABALIN
  39. TIZANIDINE. [Concomitant]
     Active Substance: TIZANIDINE
  40. LATANOPROST. [Concomitant]
     Active Substance: LATANOPROST
  41. DICLOFENAC [Concomitant]
     Active Substance: DICLOFENAC
  42. ECONAZOLE. [Concomitant]
     Active Substance: ECONAZOLE NITRATE
  43. FLUOCINONIDE. [Concomitant]
     Active Substance: FLUOCINONIDE
  44. MEDROL [Concomitant]
     Active Substance: METHYLPREDNISOLONE
  45. TEMAZEPAM. [Concomitant]
     Active Substance: TEMAZEPAM
  46. VITAMIN D3 [Concomitant]
     Active Substance: CHOLECALCIFEROL

REACTIONS (11)
  - Renal impairment [Unknown]
  - Gout [Not Recovered/Not Resolved]
  - Chronic kidney disease [Not Recovered/Not Resolved]
  - Pain [Not Recovered/Not Resolved]
  - Anxiety [Not Recovered/Not Resolved]
  - Anhedonia [Not Recovered/Not Resolved]
  - Anaemia [Recovered/Resolved]
  - Urinary retention [Unknown]
  - Prostatomegaly [Unknown]
  - Acute kidney injury [Not Recovered/Not Resolved]
  - Emotional distress [Not Recovered/Not Resolved]

NARRATIVE: CASE EVENT DATE: 2008
